FAERS Safety Report 17020938 (Version 1)
Quarter: 2019Q4

REPORT INFORMATION
  Report Type: Spontaneous
  Country: US (occurrence: US)
  Receive Date: 20191111
  Receipt Date: 20191111
  Transmission Date: 20200122
  Serious: No
  Sender: FDA-Public Use
  Company Number: None

PATIENT
  Age: 3 Year
  Sex: Male

DRUGS (10)
  1. CETIRIZINE 1MG/ML SYRUP [Concomitant]
  2. CREON 6000 UNITS [Concomitant]
  3. NEXIUM 20MG POWDER [Concomitant]
  4. SODIUM CHLORIDE NEBS 3% [Concomitant]
  5. FLOVENT 110MCG MDI [Concomitant]
  6. MIRALAX [Concomitant]
     Active Substance: POLYETHYLENE GLYCOL 3350
  7. AMITIZA 8MCG [Concomitant]
  8. KALYDECO [Suspect]
     Active Substance: IVACAFTOR
     Indication: CYSTIC FIBROSIS
     Route: 048
  9. ALBUTEROL MDI [Concomitant]
     Active Substance: ALBUTEROL
  10. ONDANSETRON 4MG/5ML SOL [Concomitant]

REACTIONS (1)
  - Upper respiratory tract infection [None]

NARRATIVE: CASE EVENT DATE: 20191111
